FAERS Safety Report 8723602 (Version 2)
Quarter: 2012Q4

REPORT INFORMATION
  Report Type: 
  Country: US (occurrence: US)
  Receive Date: 20120814
  Receipt Date: 20120913
  Transmission Date: 20130627
  Serious: Yes (Death)
  Sender: FDA-Public Use
  Company Number: US-ALLERGAN-1211010US

PATIENT
  Age: 2 Year

DRUGS (9)
  1. BOTOX� [Suspect]
     Indication: TORTICOLLIS
     Dosage: 50 UNITS, single
     Route: 030
     Dates: start: 201207, end: 201207
  2. LUMINAL [Concomitant]
     Dosage: 64.8 mg, qpm
  3. LUMINAL [Concomitant]
     Dosage: 32.4 mg, qd
  4. KEPPRA [Concomitant]
     Dosage: 250 mg, qd
  5. TYLENOL [Concomitant]
     Dosage: 240 mg, prn
  6. RITALIN [Concomitant]
  7. SYMMETREL [Concomitant]
     Dosage: 50 mg, qd
     Route: 048
  8. LIORESAL [Concomitant]
     Dosage: 5 mg, bid
  9. KLONOPIN [Concomitant]
     Dosage: 0.5 mg, bid

REACTIONS (1)
  - Septic shock [Fatal]
